FAERS Safety Report 7352010-2 (Version None)
Quarter: 2011Q1

REPORT INFORMATION
  Report Type: 
  Country: None (occurrence: None)
  Receive Date: 20110315
  Receipt Date: 20110308
  Transmission Date: 20110831
  Serious: No
  Sender: FDA-Public Use
  Company Number: US-PFIZER INC-2011051893

PATIENT
  Sex: Male
  Weight: 74.83 kg

DRUGS (2)
  1. CHANTIX [Suspect]
     Indication: SMOKING CESSATION THERAPY
     Dosage: 0.5 MG, 1X/DAY
     Route: 048
     Dates: start: 20110302
  2. XANAX [Suspect]
     Indication: MENTAL DISORDER
     Dosage: UNK
     Route: 048

REACTIONS (3)
  - NAUSEA [None]
  - DYSGEUSIA [None]
  - DRUG DOSE OMISSION [None]
